FAERS Safety Report 7279587-X (Version None)
Quarter: 2011Q1

REPORT INFORMATION
  Report Type: 
  Country: None (occurrence: None)
  Receive Date: 20110203
  Receipt Date: 20110203
  Transmission Date: 20110831
  Serious: No
  Sender: FDA-Public Use
  Company Number: None

PATIENT
  Sex: Female
  Weight: 72.5755 kg

DRUGS (2)
  1. METFORMIN HCL [Suspect]
     Indication: DIABETES MELLITUS
     Dosage: 500 MG 1 TABLET/DAILY
  2. METFORMIN HCL [Suspect]

REACTIONS (3)
  - MALAISE [None]
  - PRODUCT SUBSTITUTION ISSUE [None]
  - NAUSEA [None]
